FAERS Safety Report 9880368 (Version 1)
Quarter: 2014Q1

REPORT INFORMATION
  Report Type: Report from Study
  Country: US (occurrence: US)
  Receive Date: 20140207
  Receipt Date: 20140207
  Transmission Date: 20141002
  Serious: Yes (Death, Hospitalization)
  Sender: FDA-Public Use
  Company Number: US-ROCHE-1319901

PATIENT
  Age: 56 Year
  Sex: Female
  Weight: 63.3 kg

DRUGS (7)
  1. AVASTIN [Suspect]
     Indication: APPENDIX CANCER
     Route: 065
     Dates: start: 2010
  2. AVASTIN [Suspect]
     Dosage: 475 MG DAY 1
     Route: 042
     Dates: start: 20120104
  3. AVASTIN [Suspect]
     Route: 042
     Dates: start: 20120125
  4. XELODA [Suspect]
     Indication: APPENDIX CANCER
     Dosage: BID ON DAY 1 TO DAY 14
     Route: 048
     Dates: start: 20120104, end: 201201
  5. ACETAMINOPHEN [Concomitant]
     Dosage: DAY 1
     Route: 048
     Dates: start: 20120104
  6. OXALIPLATIN [Concomitant]
  7. 5-FU [Concomitant]

REACTIONS (6)
  - Intestinal obstruction [Unknown]
  - Pain [Unknown]
  - Renal failure acute [Unknown]
  - Convulsion [Unknown]
  - Death [Fatal]
  - Off label use [Unknown]
